FAERS Safety Report 8028336-6 (Version None)
Quarter: 2012Q1

REPORT INFORMATION
  Report Type: 
  Country: None (occurrence: None)
  Receive Date: 20120106
  Receipt Date: 20111230
  Transmission Date: 20120608
  Serious: Yes (Hospitalization)
  Sender: FDA-Public Use
  Company Number: PHHY2011IT106893

PATIENT
  Sex: Female

DRUGS (4)
  1. RIBAVIRIN [Suspect]
     Indication: LIVER DISORDER
     Dosage: 800 MG, UNK
     Route: 048
     Dates: start: 20110511, end: 20111117
  2. EXJADE [Suspect]
     Indication: THALASSAEMIA BETA
     Dosage: 1250 MG, UNK
     Route: 048
     Dates: start: 20110414
  3. PEGASYS [Suspect]
     Indication: LIVER DISORDER
     Dosage: 180 UG, WEEKLY INJECTABLE SOLUTION
     Route: 048
     Dates: start: 20111115, end: 20111117
  4. ANTIOXIDANTS [Concomitant]

REACTIONS (1)
  - CHORIORETINITIS [None]
